FAERS Safety Report 4919598-X (Version None)
Quarter: 2006Q1

REPORT INFORMATION
  Report Type: 
  Country: None (occurrence: None)
  Receive Date: 20060222
  Receipt Date: 20051219
  Transmission Date: 20060701
  Serious: Yes (Other)
  Sender: FDA-Public Use
  Company Number: JP-MERCK-0512USA03456

PATIENT
  Age: 39 Year
  Sex: Male

DRUGS (10)
  1. PEPCID RPD [Suspect]
     Route: 048
     Dates: start: 20051207, end: 20051219
  2. [THERAPY UNSPECIFIED] [Concomitant]
     Route: 065
     Dates: start: 20051201, end: 20051207
  3. BIOFERMIN [Concomitant]
     Route: 048
     Dates: start: 20051208
  4. SOLETON [Concomitant]
     Route: 065
     Dates: start: 20051201, end: 20051206
  5. SELBEX [Concomitant]
     Route: 048
     Dates: start: 20051201, end: 20051206
  6. MUCOSTA [Concomitant]
     Route: 048
     Dates: start: 20051207
  7. PEPCID [Suspect]
     Route: 048
     Dates: start: 20051201, end: 20051206
  8. LENDORMIN [Concomitant]
     Route: 048
     Dates: start: 20051209
  9. WARFARIN [Concomitant]
     Route: 048
     Dates: start: 20051209, end: 20051211
  10. WARFARIN [Concomitant]
     Route: 048
     Dates: start: 20051212, end: 20051216

REACTIONS (1)
  - RHABDOMYOLYSIS [None]
